FAERS Safety Report 6194210-3 (Version None)
Quarter: 2009Q2

REPORT INFORMATION
  Report Type: 
  Country: None (occurrence: None)
  Receive Date: 20090519
  Receipt Date: 20090511
  Transmission Date: 20091009
  Serious: No
  Sender: FDA-Public Use
  Company Number: US-B.I. PHARMACEUTICALS,INC./RIDGEFIELD-2009-BP-05948BP

PATIENT
  Sex: Female

DRUGS (1)
  1. SPIRIVA [Suspect]
     Indication: MYALGIA
     Dosage: 18MCG
     Route: 055
     Dates: start: 20070101

REACTIONS (2)
  - OEDEMA PERIPHERAL [None]
  - PULMONARY CONGESTION [None]
